FAERS Safety Report 23429736 (Version 1)
Quarter: 2024Q1

REPORT INFORMATION
  Report Type: Spontaneous
  Country: US (occurrence: US)
  Receive Date: 20240122
  Receipt Date: 20240122
  Transmission Date: 20240409
  Serious: No
  Sender: FDA-Public Use
  Company Number: US-BAUSCH-BL-2024-000926

PATIENT
  Sex: Female

DRUGS (1)
  1. NASALCROM [Suspect]
     Active Substance: CROMOLYN SODIUM
     Indication: Nasal congestion
     Dosage: USING FOR A WEEK OR TWO
     Route: 045

REACTIONS (5)
  - Dizziness [Recovering/Resolving]
  - Hypoaesthesia [Recovering/Resolving]
  - Accidental exposure to product [Unknown]
  - Accidental overdose [Unknown]
  - Product physical issue [Unknown]
